FAERS Safety Report 12484431 (Version 2)
Quarter: 2016Q2

REPORT INFORMATION
  Report Type: Spontaneous
  Country: JP (occurrence: JP)
  Receive Date: 20160621
  Receipt Date: 20160627
  Transmission Date: 20160815
  Serious: Yes (Other)
  Sender: FDA-Public Use
  Company Number: JP-PFIZER INC-2016302032

PATIENT
  Sex: Female

DRUGS (3)
  1. LYRICA [Suspect]
     Active Substance: PREGABALIN
     Dosage: 1 DF, 2X/DAY
     Route: 048
     Dates: start: 201606
  2. LYRICA [Suspect]
     Active Substance: PREGABALIN
     Dosage: 2 DF, 2X/DAY
     Route: 048
     Dates: start: 20160603, end: 201606
  3. LYRICA [Suspect]
     Active Substance: PREGABALIN
     Dosage: 1 DF, 2X/DAY
     Route: 048
     Dates: start: 20160527, end: 20160602

REACTIONS (9)
  - Visual impairment [Unknown]
  - Cataract [Unknown]
  - Arrhythmia [Unknown]
  - Blood pressure diastolic decreased [Unknown]
  - Head discomfort [Unknown]
  - Palpitations [Unknown]
  - Diplopia [Unknown]
  - Somnolence [Unknown]
  - Feeling abnormal [Unknown]

NARRATIVE: CASE EVENT DATE: 201606
